FAERS Safety Report 7248880-9 (Version None)
Quarter: 2011Q1

REPORT INFORMATION
  Report Type: 
  Country: None (occurrence: None)
  Receive Date: 20110128
  Receipt Date: 20110119
  Transmission Date: 20110831
  Serious: Yes (Other)
  Sender: FDA-Public Use
  Company Number: JP-SANOFI-AVENTIS-2010SA074216

PATIENT
  Age: 100 Year
  Sex: Female

DRUGS (2)
  1. LASIX [Suspect]
     Route: 048
     Dates: start: 20101125, end: 20101209
  2. MAGNESIUM OXIDE [Suspect]

REACTIONS (3)
  - BLOOD CREATININE INCREASED [None]
  - ASTHENIA [None]
  - BLOOD UREA INCREASED [None]
